FAERS Safety Report 25064557 (Version 1)
Quarter: 2025Q1

REPORT INFORMATION
  Report Type: Spontaneous
  Country: US (occurrence: US)
  Receive Date: 20250311
  Receipt Date: 20250311
  Transmission Date: 20250408
  Serious: Yes (Other)
  Sender: ELI LILLY AND COMPANY
  Company Number: US-ELI_LILLY_AND_COMPANY-US202503000401

PATIENT

DRUGS (1)
  1. EMGALITY [Suspect]
     Active Substance: GALCANEZUMAB-GNLM
     Indication: Migraine
     Route: 065
     Dates: start: 202405

REACTIONS (5)
  - Gait disturbance [Unknown]
  - Dizziness [Unknown]
  - Loss of control of legs [Unknown]
  - Vomiting [Unknown]
  - Migraine [Unknown]

NARRATIVE: CASE EVENT DATE: 20241001
